FAERS Safety Report 8082751-3 (Version None)
Quarter: 2012Q1

REPORT INFORMATION
  Report Type: 
  Country: None (occurrence: None)
  Receive Date: 20120127
  Receipt Date: 20110204
  Transmission Date: 20120608
  Serious: No
  Sender: FDA-Public Use
  Company Number: US-ABBOTT-11P-163-0703849-00

PATIENT
  Age: 31 Year
  Sex: Female

DRUGS (3)
  1. HUMIRA [Suspect]
     Indication: ANKYLOSING SPONDYLITIS
     Dates: start: 20110111
  2. BIRTH CONTROL PILLS [Concomitant]
     Indication: CONTRACEPTION
     Dosage: DAILY
  3. PENTASA [Concomitant]
     Indication: CROHN'S DISEASE
     Dosage: 500MG 3 TABLETS QID

REACTIONS (3)
  - INJECTION SITE MASS [None]
  - INJECTION SITE PAPULE [None]
  - INJECTION SITE PAIN [None]
